FAERS Safety Report 25978183 (Version 2)
Quarter: 2025Q4

REPORT INFORMATION
  Report Type: Spontaneous
  Country: US (occurrence: US)
  Receive Date: 20251030
  Receipt Date: 20251113
  Transmission Date: 20260118
  Serious: Yes (Hospitalization)
  Sender: TEVA
  Company Number: US-TEVA-VS-3384421

PATIENT
  Age: 70 Year
  Sex: Female

DRUGS (2)
  1. ARGATROBAN [Suspect]
     Active Substance: ARGATROBAN
     Indication: Pulmonary embolism
     Route: 065
  2. ASPIRIN [Suspect]
     Active Substance: ASPIRIN
     Indication: Pulmonary embolism
     Route: 065

REACTIONS (1)
  - Haematochezia [Unknown]
